FAERS Safety Report 24276212 (Version 1)
Quarter: 2024Q3

REPORT INFORMATION
  Report Type: Spontaneous
  Country: US (occurrence: US)
  Receive Date: 20240903
  Receipt Date: 20240903
  Transmission Date: 20241017
  Serious: No
  Sender: RECKITT BENCKISER
  Company Number: US-PROD-AS2-212756134-RB-083772-2024

PATIENT
  Age: 77 Year
  Sex: Male

DRUGS (1)
  1. MUCINEX [Suspect]
     Active Substance: GUAIFENESIN
     Indication: Respiratory tract congestion
     Dosage: 2 DOSAGE FORM, BID
     Route: 048
     Dates: start: 202401, end: 20240128

REACTIONS (2)
  - Productive cough [Recovering/Resolving]
  - Rash [Recovering/Resolving]
